FAERS Safety Report 4997808-0 (Version None)
Quarter: 2006Q2

REPORT INFORMATION
  Report Type: 
  Country: None (occurrence: None)
  Receive Date: 20060510
  Receipt Date: 20051031
  Transmission Date: 20061013
  Serious: No
  Sender: FDA-Public Use
  Company Number: US-BRISTOL-MYERS SQUIBB COMPANY-13162250

PATIENT
  Age: 57 Year
  Sex: Female

DRUGS (1)
  1. MONOPRIL [Suspect]

REACTIONS (1)
  - COUGH [None]
